FAERS Safety Report 8277352-8 (Version None)
Quarter: 2012Q2

REPORT INFORMATION
  Report Type: 
  Country: None (occurrence: None)
  Receive Date: 20120412
  Receipt Date: 20120403
  Transmission Date: 20120825
  Serious: Yes (Hospitalization)
  Sender: FDA-Public Use
  Company Number: UA-ASTRAZENECA-2012SE22170

PATIENT
  Age: 38 Year
  Sex: Female

DRUGS (9)
  1. DIVIGEL [Suspect]
     Dates: start: 20090101
  2. PROGESTERONE [Suspect]
     Dates: start: 20090101
  3. LISINOPRIL [Suspect]
     Indication: HYPERTENSION
     Route: 048
  4. METHYLDOPA [Suspect]
     Indication: HYPERTENSION
  5. METOPROLOL TARTRATE [Suspect]
  6. CURANTYL [Concomitant]
  7. PROGESTERONE [Suspect]
     Dates: start: 20090101
  8. PROGESTERONE [Suspect]
     Dates: start: 20090101
  9. ASPIGREL [Concomitant]

REACTIONS (1)
  - SYSTEMIC LUPUS ERYTHEMATOSUS [None]
